FAERS Safety Report 9316759 (Version 2)
Quarter: 2013Q2

REPORT INFORMATION
  Report Type: Spontaneous
  Country: US (occurrence: US)
  Receive Date: 20130530
  Receipt Date: 20130530
  Transmission Date: 20140414
  Serious: No
  Sender: FDA-Public Use
  Company Number: US-MYLANLABS-2012S1016421

PATIENT
  Age: 80 Year
  Sex: Male

DRUGS (4)
  1. ZOLPIDEM TABLETS [Suspect]
     Indication: ANXIETY
  2. ZOLPIDEM TABLETS [Suspect]
     Indication: INITIAL INSOMNIA
  3. ZOLPIDEM TABLETS [Suspect]
     Indication: DEPRESSION
  4. ZOLPIDEM TABLETS [Suspect]
     Indication: STRESS

REACTIONS (3)
  - Drug effect decreased [Unknown]
  - Insomnia [Not Recovered/Not Resolved]
  - Dizziness [Not Recovered/Not Resolved]
